FAERS Safety Report 9033133 (Version 1)
Quarter: 2013Q1

REPORT INFORMATION
  Report Type: Report from Study
  Country: DE (occurrence: DE)
  Receive Date: 20130128
  Receipt Date: 20130128
  Transmission Date: 20140127
  Serious: Yes (Death, Life-Threatening, Hospitalization, Other)
  Sender: FDA-Public Use
  Company Number: DE-ASTRAZENECA-2013SE04131

PATIENT
  Age: 63 Year
  Sex: Female
  Weight: 62 kg

DRUGS (15)
  1. AZD6140 [Suspect]
     Indication: ACUTE MYOCARDIAL INFARCTION
     Dosage: 180 MG, LOADING DOSE
     Route: 048
     Dates: start: 20130115
  2. AZD6140 [Suspect]
     Indication: ACUTE MYOCARDIAL INFARCTION
     Dosage: 90 MG TWICE DAILY, 30 DAYS ACTIVE TREATMENT
     Route: 048
     Dates: start: 20130115, end: 20130117
  3. ASS [Concomitant]
     Dosage: 1-0-0
     Route: 048
     Dates: start: 20130116
  4. BISOPROLOL [Concomitant]
     Dosage: 1-0-0
     Route: 048
  5. RAMIPRIL [Concomitant]
     Dosage: 1-0-0
     Route: 048
     Dates: start: 20130116
  6. ATORVASTATIN [Concomitant]
     Dosage: 0-0-1
     Route: 048
     Dates: start: 20130116
  7. VOMEX [Concomitant]
     Route: 048
     Dates: start: 20130116, end: 20130116
  8. METOCLOPRAMID [Concomitant]
     Route: 042
     Dates: start: 20130115
  9. IBUPROFEN [Concomitant]
     Dosage: 1-1-0
     Route: 048
     Dates: start: 20130110, end: 20130115
  10. HEPARIN [Concomitant]
     Route: 042
     Dates: start: 20130115, end: 20130115
  11. ASPISOL 500 [Concomitant]
     Route: 042
     Dates: start: 20130115, end: 20130115
  12. MORPHIUM [Concomitant]
     Route: 042
     Dates: start: 20130115, end: 20130115
  13. NITRO [Concomitant]
     Route: 042
     Dates: start: 20130115, end: 20130115
  14. IMERON [Concomitant]
     Route: 042
     Dates: start: 20130115, end: 20130115
  15. ANGIOX [Concomitant]
     Route: 042
     Dates: start: 20130115, end: 20130115

REACTIONS (1)
  - Ventricle rupture [Fatal]
